FAERS Safety Report 8169807-1 (Version None)
Quarter: 2012Q1

REPORT INFORMATION
  Report Type: 
  Country: None (occurrence: None)
  Receive Date: 20120228
  Receipt Date: 20120217
  Transmission Date: 20120608
  Serious: Yes (Other)
  Sender: FDA-Public Use
  Company Number: ES-JNJFOC-20120212164

PATIENT

DRUGS (1)
  1. USTEKINUMAB [Suspect]
     Indication: CROHN'S DISEASE
     Route: 050

REACTIONS (2)
  - OFF LABEL USE [None]
  - ANAL FISTULA [None]
